FAERS Safety Report 9282136 (Version 1)
Quarter: 2013Q2

REPORT INFORMATION
  Report Type: Spontaneous
  Country: US (occurrence: US)
  Receive Date: 20130510
  Receipt Date: 20130510
  Transmission Date: 20140414
  Serious: Yes (Hospitalization)
  Sender: FDA-Public Use
  Company Number: US-AMGEN-USASP2013032691

PATIENT
  Sex: Female

DRUGS (4)
  1. NEULASTA [Suspect]
     Indication: NEUTROPENIA
     Dosage: UNK
  2. TAXOTERE [Concomitant]
     Dosage: UNK
  3. ADRIAMYCIN                         /00330901/ [Concomitant]
     Dosage: UNK
  4. CYCLOPHOSPHAMIDE [Concomitant]
     Dosage: UNK

REACTIONS (2)
  - Neutrophil count decreased [Unknown]
  - Drug ineffective [Unknown]
